FAERS Safety Report 5394662-2 (Version None)
Quarter: 2007Q3

REPORT INFORMATION
  Report Type: 
  Country: None (occurrence: None)
  Receive Date: 20070723
  Receipt Date: 20070702
  Transmission Date: 20080115
  Serious: Yes (Hospitalization, Other)
  Sender: FDA-Public Use
  Company Number: US-PFIZER INC-2006117008

PATIENT
  Sex: Female
  Weight: 90.3 kg

DRUGS (7)
  1. BEXTRA [Suspect]
     Indication: PAIN
  2. VIOXX [Suspect]
     Indication: OSTEOARTHRITIS
     Dates: start: 20020916
  3. VICODIN [Concomitant]
     Dates: start: 19980526, end: 20050905
  4. ATENOLOL [Concomitant]
     Dates: start: 19991026, end: 20061007
  5. DYAZIDE [Concomitant]
     Dates: start: 19910101
  6. LASIX [Concomitant]
     Dates: start: 19910101
  7. SYNTHROID [Concomitant]
     Dates: start: 19900101

REACTIONS (2)
  - CEREBROVASCULAR ACCIDENT [None]
  - MYOCARDIAL INFARCTION [None]
